FAERS Safety Report 5601359-X (Version None)
Quarter: 2008Q1

REPORT INFORMATION
  Report Type: 
  Country: None (occurrence: None)
  Receive Date: 20080118
  Receipt Date: 20071228
  Transmission Date: 20080703
  Serious: Yes (Hospitalization)
  Sender: FDA-Public Use
  Company Number: 2008EU000027

PATIENT
  Age: 56 Year
  Sex: Male

DRUGS (10)
  1. PROGRAF [Suspect]
     Indication: RENAL TRANSPLANT
     Dosage: 11 MG, ORAL
     Route: 048
  2. MYFORTIC [Suspect]
     Indication: RENAL TRANSPLANT
     Dosage: 1 DF, ORAL
     Route: 048
  3. PREDNISONE [Suspect]
     Indication: RENAL TRANSPLANT
     Dosage: 10 MG, ORAL
     Route: 048
  4. MOPRAL [Concomitant]
  5. AMLODIPINE BESYLATE [Concomitant]
  6. HYPERIUM (RILMENIDINE) [Concomitant]
  7. LASIX [Concomitant]
  8. ATENOLOL [Concomitant]
  9. PERINDOPRIL ERBUMINE [Concomitant]
  10. TANAKAN (GINKGO BILOBA EXTRACT) [Concomitant]

REACTIONS (4)
  - BACTERIURIA [None]
  - HAEMATURIA [None]
  - LEUKOCYTURIA [None]
  - PROSTATITIS [None]
